FAERS Safety Report 17648033 (Version 3)
Quarter: 2020Q2

REPORT INFORMATION
  Report Type: Spontaneous
  Country: DE (occurrence: DE)
  Receive Date: 20200408
  Receipt Date: 20200423
  Transmission Date: 20200713
  Serious: Yes (Other)
  Sender: FDA-Public Use
  Company Number: DE-JNJFOC-20200402417

PATIENT
  Age: 5 Decade
  Sex: Male
  Weight: 79 kg

DRUGS (4)
  1. IBUPROFEN. [Concomitant]
     Active Substance: IBUPROFEN
     Indication: BACK DISORDER
     Dosage: 3X400
     Dates: start: 20200327
  2. CETIRIZINE [Concomitant]
     Active Substance: CETIRIZINE HYDROCHLORIDE
  3. SEMPERA [Suspect]
     Active Substance: ITRACONAZOLE
     Indication: DRUG RESISTANCE
     Route: 048
     Dates: start: 20200303
  4. PANTOPRAZOL [Concomitant]
     Active Substance: PANTOPRAZOLE SODIUM
     Indication: GASTROINTESTINAL DISORDER THERAPY
     Dosage: 1X20
     Dates: start: 20200327

REACTIONS (2)
  - Paraesthesia [Unknown]
  - Muscular weakness [Unknown]

NARRATIVE: CASE EVENT DATE: 20200330
